FAERS Safety Report 8922318 (Version 1)
Quarter: 2012Q4

REPORT INFORMATION
  Report Type: Spontaneous
  Country: FI (occurrence: None)
  Receive Date: 20121109
  Receipt Date: 20121109
  Transmission Date: 20130627
  Serious: Yes (Other)
  Sender: FDA-Public Use
  Company Number: 2012S1000750

PATIENT
  Age: 64 Year
  Sex: Male

DRUGS (3)
  1. CUBICIN [Suspect]
     Indication: STAPHYLOCOCCAL SEPSIS
     Route: 042
     Dates: start: 20120731, end: 20120822
  2. RIFAMPICIN [Concomitant]
  3. PARACETAMOL [Concomitant]

REACTIONS (2)
  - Eosinophilic pneumonia [None]
  - Off label use [None]
